FAERS Safety Report 15613417 (Version 1)
Quarter: 2018Q4

REPORT INFORMATION
  Report Type: Spontaneous
  Country: ES (occurrence: ES)
  Receive Date: 20181113
  Receipt Date: 20181113
  Transmission Date: 20190205
  Serious: Yes (Other)
  Sender: FDA-Public Use
  Company Number: ES-PFIZER INC-2018434005

PATIENT
  Age: 42 Year
  Sex: Female
  Weight: 61 kg

DRUGS (1)
  1. CHAMPIX [Suspect]
     Active Substance: VARENICLINE TARTRATE
     Indication: SMOKING CESSATION THERAPY
     Dosage: 1 MG, 2X/DAY (1MG IN THE MORNING AND ANOTHER IN THE EVENING)
     Route: 048
     Dates: start: 20181004, end: 20181020

REACTIONS (13)
  - Confusional state [Recovered/Resolved]
  - Vision blurred [Recovered/Resolved]
  - Fatigue [Recovered/Resolved]
  - Dizziness [Recovered/Resolved]
  - Visual field defect [Recovered/Resolved]
  - Thinking abnormal [Recovered/Resolved]
  - Gait disturbance [Recovered/Resolved]
  - Bradyphrenia [Recovered/Resolved]
  - Dysarthria [Recovered/Resolved]
  - Derealisation [Recovering/Resolving]
  - Balance disorder [Recovered/Resolved]
  - Speech disorder [Recovered/Resolved]
  - Depressed mood [Recovered/Resolved]

NARRATIVE: CASE EVENT DATE: 201810
